FAERS Safety Report 5265740-3 (Version None)
Quarter: 2007Q1

REPORT INFORMATION
  Report Type: 
  Country: None (occurrence: None)
  Receive Date: 20061213
  Receipt Date: 20030224
  Transmission Date: 20070707
  Serious: No
  Sender: FDA-Public Use
  Company Number: 2003UW02505

PATIENT
  Age: 57 Year
  Sex: Female

DRUGS (1)
  1. TAMOXIFEN CITRATE [Suspect]
     Indication: BREAST CANCER IN SITU
     Dosage: 20 MG DAILY PO
     Route: 048
     Dates: start: 20020201

REACTIONS (3)
  - BLOOD CHOLESTEROL INCREASED [None]
  - CATARACT [None]
  - WEIGHT DECREASED [None]
